FAERS Safety Report 21160591 (Version 1)
Quarter: 2022Q3

REPORT INFORMATION
  Report Type: Spontaneous
  Country: US (occurrence: None)
  Receive Date: 20220801
  Receipt Date: 20220801
  Transmission Date: 20221027
  Serious: No
  Sender: FDA-Public Use
  Company Number: None

PATIENT
  Age: 75 Year
  Sex: Male

DRUGS (1)
  1. XGEVA [Suspect]
     Active Substance: DENOSUMAB
     Dosage: OTHER SUBCUTANEOUS?
     Route: 058

REACTIONS (5)
  - Weight decreased [None]
  - Osteonecrosis of jaw [None]
  - Oral pain [None]
  - Gingival recession [None]
  - Loose tooth [None]

NARRATIVE: CASE EVENT DATE: 20220801
